FAERS Safety Report 7381702-4 (Version None)
Quarter: 2011Q1

REPORT INFORMATION
  Report Type: 
  Country: None (occurrence: None)
  Receive Date: 20110329
  Receipt Date: 20101020
  Transmission Date: 20110831
  Serious: Yes (Other)
  Sender: FDA-Public Use
  Company Number: US-BAYER-201021430NA

PATIENT
  Sex: Female
  Weight: 117.91 kg

DRUGS (8)
  1. ZYRTEC [Concomitant]
  2. YAZ [Suspect]
     Indication: ORAL CONTRACEPTION
     Dosage: UNK
     Route: 048
     Dates: start: 20080101, end: 20100101
  3. YAZ [Suspect]
     Indication: ACNE
  4. HYDROCHLOROTHIAZIDE [Concomitant]
  5. PRILOSEC [Concomitant]
  6. LORA TAB [Concomitant]
     Indication: PAIN
  7. YAZ [Suspect]
     Indication: PREMENSTRUAL SYNDROME
  8. IBUPROFEN [Concomitant]

REACTIONS (9)
  - BILIARY DYSKINESIA [None]
  - ABDOMINAL PAIN [None]
  - GALLBLADDER CHOLESTEROLOSIS [None]
  - ABDOMINAL DISCOMFORT [None]
  - CHOLECYSTITIS CHRONIC [None]
  - NAUSEA [None]
  - GALLBLADDER INJURY [None]
  - BACK PAIN [None]
  - DIARRHOEA [None]
